FAERS Safety Report 5897126-2 (Version None)
Quarter: 2008Q3

REPORT INFORMATION
  Report Type: 
  Country: None (occurrence: None)
  Receive Date: 20080924
  Receipt Date: 20080519
  Transmission Date: 20090109
  Serious: Yes (Other)
  Sender: FDA-Public Use
  Company Number: US-ASTRAZENECA-2008UW10357

PATIENT
  Age: 69 Year
  Sex: Male
  Weight: 83.9 kg

DRUGS (2)
  1. SEROQUEL [Suspect]
     Indication: SCHIZOPHRENIA
     Route: 048
     Dates: start: 20010101
  2. ABILIFY [Concomitant]
     Dates: start: 20020101, end: 20060101

REACTIONS (2)
  - DIABETES MELLITUS [None]
  - KETOACIDOSIS [None]
